FAERS Safety Report 8921901 (Version 2)
Quarter: 2012Q4

REPORT INFORMATION
  Report Type: 
  Country: US (occurrence: US)
  Receive Date: 20121121
  Receipt Date: 20121206
  Transmission Date: 20130627
  Serious: No
  Sender: FDA-Public Use
  Company Number: US-PFIZER INC-2012287967

PATIENT
  Sex: Male

DRUGS (5)
  1. VIAGRA [Suspect]
     Indication: HYPOXIA
     Dosage: UNK
  2. VIAGRA [Suspect]
     Indication: RESPIRATORY DISORDER
  3. VIAGRA [Suspect]
     Indication: PAIN
  4. VIAGRA [Suspect]
     Indication: COLD FEET
  5. PRISTIQ [Suspect]

REACTIONS (3)
  - Off label use [Unknown]
  - Asthenia [Unknown]
  - Malaise [Unknown]
